FAERS Safety Report 22263299 (Version 1)
Quarter: 2023Q2

REPORT INFORMATION
  Report Type: Report from Study
  Country: US (occurrence: None)
  Receive Date: 20230428
  Receipt Date: 20230428
  Transmission Date: 20230722
  Serious: Yes (Death)
  Sender: FDA-Public Use
  Company Number: 2023A099216

PATIENT
  Sex: Male

DRUGS (10)
  1. LYNPARZA [Suspect]
     Active Substance: OLAPARIB
     Indication: Pancreatic carcinoma metastatic
     Route: 048
     Dates: start: 20230403
  2. ADVIL [Concomitant]
     Active Substance: IBUPROFEN
  3. ATIVAN [Concomitant]
     Active Substance: LORAZEPAM
  4. LASIX [Concomitant]
     Active Substance: FUROSEMIDE
  5. MAGNESIUM [Concomitant]
     Active Substance: MAGNESIUM
  6. NALOXONE [Concomitant]
     Active Substance: NALOXONE
  7. OMEPRAZOLE [Concomitant]
     Active Substance: OMEPRAZOLE
  8. ONDANSETRON [Concomitant]
     Active Substance: ONDANSETRON
  9. REGLAN [Concomitant]
     Active Substance: METOCLOPRAMIDE HYDROCHLORIDE
  10. RESTORIL [Concomitant]
     Active Substance: TEMAZEPAM

REACTIONS (1)
  - Death [Fatal]
